FAERS Safety Report 9320926 (Version 4)
Quarter: 2015Q1

REPORT INFORMATION
  Report Type: Report from Study
  Country: SE (occurrence: SE)
  Receive Date: 20130531
  Receipt Date: 20150312
  Transmission Date: 20150721
  Serious: Yes (Other)
  Sender: FDA-Public Use
  Company Number: SE-ROCHE-1228221

PATIENT

DRUGS (8)
  1. PEMETREXED [Suspect]
     Active Substance: PEMETREXED
     Dosage: MAINTENANCE THERAPY
     Route: 065
  2. BEVACIZUMAB [Suspect]
     Active Substance: BEVACIZUMAB
     Indication: NON-SMALL CELL LUNG CANCER
     Dosage: INDUCTION THERAPY FOR 4 CYCLES
     Route: 065
  3. DEXAMETHASONE. [Concomitant]
     Active Substance: DEXAMETHASONE
     Route: 048
  4. FOLIC ACID. [Concomitant]
     Active Substance: FOLIC ACID
     Route: 048
  5. VITAMIN B12 [Concomitant]
     Active Substance: CYANOCOBALAMIN
     Route: 048
  6. BEVACIZUMAB [Suspect]
     Active Substance: BEVACIZUMAB
     Dosage: MAINTENANCE THERAPY
     Route: 065
  7. PEMETREXED [Suspect]
     Active Substance: PEMETREXED
     Indication: NON-SMALL CELL LUNG CANCER
     Dosage: INDUCTION THERAPY FOR 4 CYCLES
     Route: 065
  8. CISPLATIN. [Suspect]
     Active Substance: CISPLATIN
     Indication: NON-SMALL CELL LUNG CANCER
     Dosage: AS AN INDUCTION THERAPY FOR 4 CYCLES
     Route: 065

REACTIONS (23)
  - Neutropenia [Unknown]
  - Thrombocytopenia [Unknown]
  - Embolism [Unknown]
  - Proteinuria [Unknown]
  - Renal failure [Unknown]
  - Peripheral sensory neuropathy [Unknown]
  - Arrhythmia [Unknown]
  - Mucosal inflammation [Unknown]
  - Leukopenia [Unknown]
  - Nausea [Unknown]
  - Gastrointestinal disorder [Unknown]
  - Infection [Unknown]
  - Hypertension [Unknown]
  - Gastrointestinal perforation [Unknown]
  - Febrile neutropenia [Unknown]
  - Anaemia [Unknown]
  - Fatigue [Unknown]
  - Wound complication [Unknown]
  - Cerebral ischaemia [Unknown]
  - Myocardial infarction [Unknown]
  - Constipation [Unknown]
  - Large intestine perforation [Unknown]
  - Haemorrhage [Unknown]
